FAERS Safety Report 4803302-X (Version None)
Quarter: 2005Q4

REPORT INFORMATION
  Report Type: 
  Country: None (occurrence: None)
  Receive Date: 20051013
  Receipt Date: 20051006
  Transmission Date: 20060501
  Serious: Yes (Death)
  Sender: FDA-Public Use
  Company Number: 234771K05USA

PATIENT
  Age: 64 Year
  Sex: Male

DRUGS (1)
  1. REBIF (INTERFERON BETA) [Suspect]
     Indication: MULTIPLE SCLEROSIS
     Dosage: 44 MCG, 3 IN 1 WEEKS,  SUBCUTANEOUS
     Route: 058
     Dates: start: 20040606

REACTIONS (1)
  - DEATH [None]
